FAERS Safety Report 5842957-8 (Version None)
Quarter: 2008Q3

REPORT INFORMATION
  Report Type: 
  Country: None (occurrence: None)
  Receive Date: 20080812
  Receipt Date: 20080728
  Transmission Date: 20090109
  Serious: Yes (Hospitalization)
  Sender: FDA-Public Use
  Company Number: 080728-0000564

PATIENT
  Age: 10 Year
  Sex: Male

DRUGS (6)
  1. ELSPAR [Suspect]
     Indication: ACUTE MYELOID LEUKAEMIA
  2. ARA-C [Suspect]
     Indication: ACUTE MYELOID LEUKAEMIA
  3. DAUNORUBICIN HCL [Suspect]
     Indication: ACUTE MYELOID LEUKAEMIA
  4. MITROXANATE [Suspect]
     Indication: ACUTE MYELOID LEUKAEMIA
  5. ETOPOSIDE [Suspect]
     Indication: ACUTE MYELOID LEUKAEMIA
  6. INTRATHECAL ARA-C [Suspect]
     Indication: ACUTE MYELOID LEUKAEMIA

REACTIONS (11)
  - BACTERIAL DISEASE CARRIER [None]
  - CULTURE POSITIVE [None]
  - ESCHAR [None]
  - EXCORIATION [None]
  - FALL [None]
  - KLEBSIELLA BACTERAEMIA [None]
  - LOCAL SWELLING [None]
  - NEUTROPENIA [None]
  - OSTEOMYELITIS FUNGAL [None]
  - PAIN IN JAW [None]
  - STREPTOCOCCAL BACTERAEMIA [None]
